FAERS Safety Report 5992705-6 (Version None)
Quarter: 2008Q4

REPORT INFORMATION
  Report Type: 
  Country: None (occurrence: None)
  Receive Date: 20081211
  Receipt Date: 20080528
  Transmission Date: 20090506
  Serious: No
  Sender: FDA-Public Use
  Company Number: US-AMGEN-KDL280431

PATIENT
  Sex: Male

DRUGS (6)
  1. ENBREL [Suspect]
     Indication: ANKYLOSING SPONDYLITIS
     Route: 058
     Dates: start: 20070418, end: 20080527
  2. SULFASALAZINE [Concomitant]
  3. FLECAINIDE ACETATE [Concomitant]
  4. METOPROLOL TARTRATE [Concomitant]
  5. EVENING PRIMROSE OIL [Concomitant]
  6. SAW PALMETTO [Concomitant]

REACTIONS (5)
  - ARTHRALGIA [None]
  - AXILLARY PAIN [None]
  - BACK PAIN [None]
  - EPISTAXIS [None]
  - LYMPHADENOPATHY [None]
